FAERS Safety Report 8499895-4 (Version None)
Quarter: 2012Q3

REPORT INFORMATION
  Report Type: 
  Country: None (occurrence: None)
  Receive Date: 20120710
  Receipt Date: 20120703
  Transmission Date: 20120928
  Serious: Yes (Other)
  Sender: FDA-Public Use
  Company Number: PHEH2012US013124

PATIENT
  Sex: Male

DRUGS (2)
  1. PEGASYS [Concomitant]
     Indication: HEPATITIS
  2. EXFORGE [Suspect]

REACTIONS (3)
  - OEDEMA PERIPHERAL [None]
  - RENAL FAILURE [None]
  - HYPERKALAEMIA [None]
